FAERS Safety Report 20824334 (Version 1)
Quarter: 2022Q2

REPORT INFORMATION
  Report Type: Spontaneous
  Country: PT (occurrence: PT)
  Receive Date: 20220513
  Receipt Date: 20220513
  Transmission Date: 20220721
  Serious: Yes (Hospitalization, Other)
  Sender: FDA-Public Use
  Company Number: PT-ASTELLAS-2022US017345

PATIENT
  Age: 44 Year
  Sex: Male

DRUGS (2)
  1. XOSPATA [Suspect]
     Active Substance: GILTERITINIB
     Indication: Acute myeloid leukaemia recurrent
     Route: 065
     Dates: start: 202110
  2. XOSPATA [Suspect]
     Active Substance: GILTERITINIB
     Route: 065
     Dates: start: 202111

REACTIONS (2)
  - Engraft failure [Not Recovered/Not Resolved]
  - FLT3 gene mutation [Unknown]
